FAERS Safety Report 5630473-8 (Version None)
Quarter: 2008Q1

REPORT INFORMATION
  Report Type: 
  Country: None (occurrence: None)
  Receive Date: 20080219
  Receipt Date: 20080214
  Transmission Date: 20080703
  Serious: Yes (Other)
  Sender: FDA-Public Use
  Company Number: HU-BAYER-200812911GPV

PATIENT
  Age: 77 Year
  Sex: Female
  Weight: 60 kg

DRUGS (1)
  1. ULTRAVIST 300 [Suspect]
     Indication: COMPUTERISED TOMOGRAM THORAX
     Route: 042
     Dates: start: 20080128, end: 20080128

REACTIONS (6)
  - ACUTE TONSILLITIS [None]
  - ANAPHYLACTOID REACTION [None]
  - DYSPNOEA [None]
  - FLUSHING [None]
  - SNEEZING [None]
  - SUFFOCATION FEELING [None]
